FAERS Safety Report 15747582 (Version 1)
Quarter: 2018Q4

REPORT INFORMATION
  Report Type: Spontaneous
  Country: US (occurrence: US)
  Receive Date: 20181220
  Receipt Date: 20181220
  Transmission Date: 20190205
  Serious: No
  Sender: FDA-Public Use
  Company Number: US-ASTRAZENECA-2018SF59976

PATIENT
  Age: 79 Year
  Sex: Male
  Weight: 85.3 kg

DRUGS (2)
  1. CRESTOR [Suspect]
     Active Substance: ROSUVASTATIN CALCIUM
     Indication: LOW DENSITY LIPOPROTEIN DECREASED
     Route: 048
     Dates: start: 2018, end: 201812
  2. CRESTOR [Suspect]
     Active Substance: ROSUVASTATIN CALCIUM
     Indication: LOW DENSITY LIPOPROTEIN DECREASED
     Route: 048
     Dates: start: 20181203

REACTIONS (5)
  - Fatigue [Unknown]
  - Amnesia [Not Recovered/Not Resolved]
  - Confusional state [Not Recovered/Not Resolved]
  - Weight increased [Not Recovered/Not Resolved]
  - Low density lipoprotein decreased [Not Recovered/Not Resolved]

NARRATIVE: CASE EVENT DATE: 2018
